FAERS Safety Report 22207777 (Version 1)
Quarter: 2023Q2

REPORT INFORMATION
  Report Type: Spontaneous
  Country: US (occurrence: None)
  Receive Date: 20230413
  Receipt Date: 20230413
  Transmission Date: 20230722
  Serious: Yes (Life-Threatening)
  Sender: FDA-Public Use
  Company Number: None

PATIENT
  Age: 45 Year
  Sex: Female
  Weight: 100.35 kg

DRUGS (1)
  1. MOUNJARO [Suspect]
     Active Substance: TIRZEPATIDE
     Indication: Diabetes mellitus
     Dosage: OTHER QUANTITY : 4 INJECTION(S);?OTHER FREQUENCY : WEEKLY;?OTHER ROUTE : INJECTION;?
     Route: 050
     Dates: start: 20230410, end: 20230410

REACTIONS (8)
  - Paraesthesia oral [None]
  - Lip swelling [None]
  - Pruritus [None]
  - Burning sensation [None]
  - Urticaria [None]
  - Diarrhoea [None]
  - Vomiting [None]
  - Throat tightness [None]

NARRATIVE: CASE EVENT DATE: 20230410
